FAERS Safety Report 6391697-8 (Version None)
Quarter: 2009Q4

REPORT INFORMATION
  Report Type: 
  Country: None (occurrence: None)
  Receive Date: 20091007
  Receipt Date: 20090803
  Transmission Date: 20100525
  Serious: No
  Sender: FDA-Public Use
  Company Number: US-BAYER-200929163NA

PATIENT
  Sex: Female

DRUGS (2)
  1. MIRENA [Suspect]
     Indication: DRUG USE FOR UNKNOWN INDICATION
     Route: 015
  2. ORAL CONTRACEPTIVE NOS [Concomitant]
     Indication: VAGINAL HAEMORRHAGE

REACTIONS (1)
  - VAGINAL HAEMORRHAGE [None]
